FAERS Safety Report 6418208-2 (Version None)
Quarter: 2009Q4

REPORT INFORMATION
  Report Type: 
  Country: None (occurrence: None)
  Receive Date: 20091028
  Receipt Date: 20091027
  Transmission Date: 20100525
  Serious: Yes (Hospitalization)
  Sender: FDA-Public Use
  Company Number: JP-EISAI INC.-E2020-04608-CLI-JP

PATIENT
  Sex: Male

DRUGS (3)
  1. ARICEPT [Suspect]
     Route: 048
     Dates: start: 20080902, end: 20080918
  2. PURSENNID [Concomitant]
     Indication: CONSTIPATION
     Dosage: 24MG X 1
     Route: 048
  3. SHINLUCK [Concomitant]
     Indication: CONSTIPATION
     Route: 048

REACTIONS (1)
  - PICA [None]
